FAERS Safety Report 12940468 (Version 2)
Quarter: 2016Q4

REPORT INFORMATION
  Report Type: Report from Study
  Country: US (occurrence: US)
  Receive Date: 20161114
  Receipt Date: 20161123
  Transmission Date: 20170207
  Serious: Yes (Other)
  Sender: FDA-Public Use
  Company Number: US-BAXALTA-2016BLT008230

PATIENT
  Age: 37 Year
  Sex: Female

DRUGS (2)
  1. GAMMAGARD LIQUID [Suspect]
     Active Substance: HUMAN IMMUNOGLOBULIN G
     Indication: IMMUNODEFICIENCY COMMON VARIABLE
     Dosage: 15 G, EVERY 2 WK
     Route: 042
     Dates: start: 20161028
  2. HYQVIA [Suspect]
     Active Substance: HUMAN IMMUNOGLOBULIN G\HYALURONIDASE RECOMBINANT HUMAN
     Indication: IMMUNODEFICIENCY COMMON VARIABLE
     Dosage: 10 G, 1X A WEEK FOR 3 WEEKS AND 1 WEEK OFF, REPEAT SERIES MONTHLY
     Route: 058
     Dates: start: 201506, end: 201606

REACTIONS (8)
  - Malaise [Not Recovered/Not Resolved]
  - Drug ineffective [Not Recovered/Not Resolved]
  - Upper respiratory tract infection [Not Recovered/Not Resolved]
  - Malaise [Unknown]
  - Migraine [Recovering/Resolving]
  - Immunoglobulins decreased [Not Recovered/Not Resolved]
  - Infectious mononucleosis [Unknown]
  - Endoscopy gastrointestinal abnormal [Not Recovered/Not Resolved]

NARRATIVE: CASE EVENT DATE: 201506
